FAERS Safety Report 7253061-9 (Version None)
Quarter: 2011Q1

REPORT INFORMATION
  Report Type: 
  Country: None (occurrence: None)
  Receive Date: 20110129
  Receipt Date: 20100122
  Transmission Date: 20110831
  Serious: No
  Sender: FDA-Public Use
  Company Number: US-ABBOTT-10P-163-0622369-00

PATIENT
  Sex: Female
  Weight: 107.6 kg

DRUGS (14)
  1. SYNTHROID [Concomitant]
     Indication: HYPOTHYROIDISM
     Route: 048
  2. CALCIUM [Concomitant]
     Indication: MINERAL SUPPLEMENTATION
  3. QUININE SULFATE [Concomitant]
     Indication: MUSCLE SPASMS
     Route: 048
  4. HUMIRA [Suspect]
     Indication: PSORIATIC ARTHROPATHY
     Route: 058
     Dates: start: 20090901
  5. CLOBETASOL PROPIONATE [Suspect]
     Indication: PSORIASIS
     Dosage: EVERY TWO TO THREE DAYS
     Route: 061
     Dates: start: 20091201
  6. CLOBETASOL PROPIONATE [Suspect]
     Route: 061
     Dates: end: 20091201
  7. PRILOSEC [Concomitant]
     Indication: GASTROOESOPHAGEAL REFLUX DISEASE
     Route: 048
  8. MORPHINE SULFATE [Concomitant]
     Indication: BACK PAIN
     Dosage: 15MG AM 30MG QHS
     Route: 048
  9. CLONAZEPAM [Concomitant]
     Indication: SLEEP DISORDER
     Route: 048
  10. VITAMIN D [Concomitant]
     Indication: VITAMIN SUPPLEMENTATION
  11. HUMIRA [Suspect]
     Indication: PSORIASIS
  12. PROMETHAZINE [Concomitant]
     Indication: NAUSEA
     Route: 048
  13. RANITIDINE [Concomitant]
     Indication: GASTROOESOPHAGEAL REFLUX DISEASE
     Route: 048
  14. SOMA [Concomitant]
     Indication: BACK PAIN
     Route: 048

REACTIONS (5)
  - EPICONDYLITIS [None]
  - INFLUENZA [None]
  - PYREXIA [None]
  - PSORIASIS [None]
  - ABDOMINAL PAIN [None]
